FAERS Safety Report 5031615-8 (Version None)
Quarter: 2006Q2

REPORT INFORMATION
  Report Type: 
  Country: None (occurrence: None)
  Receive Date: 20060616
  Receipt Date: 20060606
  Transmission Date: 20061013
  Serious: Yes (Hospitalization)
  Sender: FDA-Public Use
  Company Number: 2005BI020144

PATIENT
  Age: 41 Year
  Sex: Female

DRUGS (2)
  1. AVONEX [Suspect]
     Indication: MULTIPLE SCLEROSIS
     Dosage: 30 UG;QW;IM
     Route: 030
     Dates: start: 20000925, end: 20030801
  2. AVONEX [Suspect]
     Indication: MULTIPLE SCLEROSIS
     Dosage: 30 MCG;QW;IM
     Route: 030
     Dates: start: 20030801, end: 20050901

REACTIONS (4)
  - COAGULOPATHY [None]
  - JOINT RANGE OF MOTION DECREASED [None]
  - POST PROCEDURAL HAEMORRHAGE [None]
  - SURGERY [None]
